FAERS Safety Report 10560568 (Version 13)
Quarter: 2018Q3

REPORT INFORMATION
  Report Type: Report from Study
  Country: US (occurrence: US)
  Receive Date: 20141103
  Receipt Date: 20180702
  Transmission Date: 20181010
  Serious: Yes (Hospitalization, Other)
  Sender: FDA-Public Use
  Company Number: US-SA-2014SA114806

PATIENT
  Age: 49 Year
  Sex: Male
  Weight: 70.3 kg

DRUGS (10)
  1. LUMIZYME [Suspect]
     Active Substance: ALGLUCOSIDASE ALFA
     Dosage: DOSE1800, FREQUENCYQ2
     Route: 041
     Dates: start: 20151122
  2. PARACETAMOL [Concomitant]
     Active Substance: ACETAMINOPHEN
     Dosage: UNK
  3. AGALSIDASE BETA [Suspect]
     Active Substance: AGALSIDASE BETA
  4. LUMIZYME [Suspect]
     Active Substance: ALGLUCOSIDASE ALFA
     Indication: GLYCOGEN STORAGE DISEASE TYPE II
     Dosage: 22.75 MG/KG,QOW
     Route: 041
     Dates: start: 20070401, end: 201502
  5. LUMIZYME [Suspect]
     Active Substance: ALGLUCOSIDASE ALFA
     Dosage: 22.75 MG/KG,UNK
     Route: 041
     Dates: start: 2015
  6. LUMIZYME [Suspect]
     Active Substance: ALGLUCOSIDASE ALFA
     Dosage: DOSE: 1750 FREQUENCY: Q2
     Route: 041
     Dates: start: 20161101
  7. LUMIZYME [Suspect]
     Active Substance: ALGLUCOSIDASE ALFA
     Dosage: DOSE: 1800, FREQUENCY: Q2
     Dates: start: 20150822
  8. LUMIZYME [Suspect]
     Active Substance: ALGLUCOSIDASE ALFA
     Dosage: DOSE: 1800 FREQUENCY: Q2
     Route: 041
     Dates: start: 20170715
  9. OXYCODONE [Concomitant]
     Active Substance: OXYCODONE
     Dosage: UNK
  10. NORCO [Concomitant]
     Active Substance: ACETAMINOPHEN\HYDROCODONE BITARTRATE
     Dosage: UNK

REACTIONS (25)
  - Fall [Unknown]
  - Asthma [Unknown]
  - Muscular weakness [Unknown]
  - Cold sweat [Recovering/Resolving]
  - Ill-defined disorder [Unknown]
  - Fatigue [Unknown]
  - Hypertension [Unknown]
  - Panic attack [Unknown]
  - Muscle disorder [Unknown]
  - Ulcer [Unknown]
  - Ill-defined disorder [Not Recovered/Not Resolved]
  - Liver function test increased [Unknown]
  - Gallbladder disorder [Unknown]
  - Peptic ulcer [Unknown]
  - Irritable bowel syndrome [Unknown]
  - Asthenia [Not Recovered/Not Resolved]
  - Diverticulitis [Recovering/Resolving]
  - Abdominal pain [Recovering/Resolving]
  - Hepatic steatosis [Not Recovered/Not Resolved]
  - Cholelithiasis [Unknown]
  - Feeling abnormal [Unknown]
  - Myopathy [Unknown]
  - Back pain [Not Recovered/Not Resolved]
  - Hyperhidrosis [Recovering/Resolving]
  - Fatigue [Not Recovered/Not Resolved]

NARRATIVE: CASE EVENT DATE: 2014
